FAERS Safety Report 19407743 (Version 2)
Quarter: 2021Q2

REPORT INFORMATION
  Report Type: Report from Study
  Country: None (occurrence: US)
  Receive Date: 20210612
  Receipt Date: 20210620
  Transmission Date: 20210717
  Serious: Yes (Hospitalization, Other)
  Sender: FDA-Public Use
  Company Number: US-ABBVIE-21K-163-3944565-00

PATIENT
  Age: 47 Year
  Sex: Male

DRUGS (3)
  1. DEPAKOTE [Suspect]
     Active Substance: DIVALPROEX SODIUM
     Indication: SEIZURE
     Dosage: 3 TABLETS EVERY 4 HOURS
     Route: 048
     Dates: start: 2019
  2. DEPAKOTE [Suspect]
     Active Substance: DIVALPROEX SODIUM
     Dosage: 3 TABLETS EVERY 4 HOURS
     Route: 048
     Dates: start: 20210602
  3. OMEPRAZOLE. [Concomitant]
     Active Substance: OMEPRAZOLE
     Indication: GASTROOESOPHAGEAL REFLUX DISEASE

REACTIONS (6)
  - Blood glucose increased [Unknown]
  - Blood creatinine decreased [Unknown]
  - Carbon dioxide decreased [Unknown]
  - Anticonvulsant drug level decreased [Unknown]
  - Seizure [Recovered/Resolved]
  - Seizure [Recovered/Resolved]

NARRATIVE: CASE EVENT DATE: 20210528
